FAERS Safety Report 21230520 (Version 1)
Quarter: 2022Q3

REPORT INFORMATION
  Report Type: Spontaneous
  Country: US (occurrence: US)
  Receive Date: 20220818
  Receipt Date: 20220818
  Transmission Date: 20221027
  Serious: Yes (Death, Life-Threatening)
  Sender: FDA-Public Use
  Company Number: US-MALLINCKRODT-T202204383

PATIENT
  Age: 74 Year
  Sex: Male

DRUGS (1)
  1. INOMAX [Suspect]
     Active Substance: NITRIC OXIDE
     Indication: Cardiac disorder
     Dosage: 40 PPM, INHALATION
     Route: 055
     Dates: start: 20220813, end: 20220813

REACTIONS (4)
  - Withdrawal of life support [Fatal]
  - Cardiac arrest [Unknown]
  - Product use issue [Unknown]
  - Device failure [Unknown]

NARRATIVE: CASE EVENT DATE: 20220813
